FAERS Safety Report 7478275-4 (Version None)
Quarter: 2011Q2

REPORT INFORMATION
  Report Type: 
  Country: None (occurrence: None)
  Receive Date: 20110513
  Receipt Date: 20110510
  Transmission Date: 20111010
  Serious: Yes (Death, Hospitalization)
  Sender: FDA-Public Use
  Company Number: PHFR2011GB02247

PATIENT
  Sex: Male

DRUGS (2)
  1. CLOZARIL [Suspect]
     Dosage: UNK DF, UNK
     Route: 048
  2. CLOZARIL [Suspect]
     Indication: SCHIZOPHRENIA
     Dosage: UNK DF, UNK
     Route: 048
     Dates: start: 20070212

REACTIONS (9)
  - DYSPHAGIA [None]
  - CARDIAC FAILURE [None]
  - PSYCHOTIC DISORDER [None]
  - EATING DISORDER [None]
  - DYSPNOEA [None]
  - BRONCHITIS [None]
  - WEIGHT DECREASED [None]
  - CARDIAC ARREST [None]
  - BRONCHOPNEUMONIA [None]
